FAERS Safety Report 10907858 (Version 1)
Quarter: 2015Q1

REPORT INFORMATION
  Report Type: Spontaneous
  Country: US (occurrence: US)
  Receive Date: 20150312
  Receipt Date: 20150312
  Transmission Date: 20150721
  Serious: No
  Sender: FDA-Public Use
  Company Number: US-INCYTE CORPORATION-2014IN003937

PATIENT
  Age: 70 Year
  Sex: Female

DRUGS (3)
  1. ASPIRIN. [Concomitant]
     Active Substance: ASPIRIN
  2. VITAMINS NOS [Concomitant]
     Active Substance: VITAMINS
  3. JAKAFI [Suspect]
     Active Substance: RUXOLITINIB
     Indication: MYELOFIBROSIS
     Dosage: 2.5 MG, BID
     Route: 048
     Dates: start: 20140407

REACTIONS (5)
  - Diarrhoea [Unknown]
  - Mouth ulceration [Unknown]
  - Visual impairment [Unknown]
  - Abdominal distension [Unknown]
  - Medication error [Unknown]

NARRATIVE: CASE EVENT DATE: 20141210
